FAERS Safety Report 4515233-3 (Version None)
Quarter: 2004Q4

REPORT INFORMATION
  Report Type: 
  Country: None (occurrence: None)
  Receive Date: 20041129
  Receipt Date: 20041129
  Transmission Date: 20050328
  Serious: Yes (Life-Threatening)
  Sender: FDA-Public Use
  Company Number: None

PATIENT

DRUGS (1)
  1. DINOPROSTONE [Suspect]

REACTIONS (8)
  - ANAPHYLACTOID REACTION [None]
  - COMPLICATION OF PREGNANCY [None]
  - DISSEMINATED INTRAVASCULAR COAGULATION [None]
  - DRUG EXPOSURE DURING PREGNANCY [None]
  - FOETAL HEART RATE DECELERATION [None]
  - HAEMODYNAMIC TEST ABNORMAL [None]
  - RESPIRATION ABNORMAL [None]
  - UTERINE CONTRACTIONS ABNORMAL [None]
